FAERS Safety Report 7098792-9 (Version None)
Quarter: 2010Q4

REPORT INFORMATION
  Report Type: 
  Country: None (occurrence: None)
  Receive Date: 20101112
  Receipt Date: 20101029
  Transmission Date: 20110411
  Serious: Yes (Other)
  Sender: FDA-Public Use
  Company Number: DE-ROCHE-725498

PATIENT
  Sex: Female
  Weight: 57 kg

DRUGS (10)
  1. PEGINTERFERON ALFA-2A [Suspect]
     Route: 058
     Dates: start: 20100415, end: 20100806
  2. RIBAVIRIN [Suspect]
     Route: 048
     Dates: start: 20100415, end: 20100806
  3. DIAZEPAM [Concomitant]
     Indication: DRUG WITHDRAWAL MAINTENANCE THERAPY
     Dates: start: 20080908
  4. NORDETTE-28 [Concomitant]
     Indication: CONTRACEPTION
     Route: 048
     Dates: start: 20070104
  5. BEROTEC [Concomitant]
     Dosage: IF REQUIRED
     Dates: start: 20050611
  6. FOSTER [Concomitant]
     Dates: start: 20100201
  7. SPIRIVA [Concomitant]
     Dates: start: 20100201
  8. AERIUS [Concomitant]
     Indication: RHINITIS ALLERGIC
     Route: 048
     Dates: start: 20040503
  9. OMEPRAZOLE [Concomitant]
     Route: 048
     Dates: start: 20061011
  10. CITALOPRAM HYDROBROMIDE [Concomitant]
     Route: 048
     Dates: start: 20100415

REACTIONS (3)
  - ANAEMIA [None]
  - LEUKOPENIA [None]
  - OTITIS MEDIA [None]
